FAERS Safety Report 10542264 (Version 1)
Quarter: 2014Q4

REPORT INFORMATION
  Report Type: Spontaneous
  Country: US (occurrence: None)
  Receive Date: 20141010
  Receipt Date: 20141010
  Transmission Date: 20150529
  Serious: No
  Sender: FDA-Public Use
  Company Number: 163-POMAL-14054341

PATIENT
  Age: 80 Year
  Sex: Male
  Weight: 70.76 kg

DRUGS (7)
  1. ASPIRIN(ACETYLSALICYLIC ACID) [Concomitant]
     Active Substance: ASPIRIN
  2. MULTIVITAMINS [Concomitant]
     Active Substance: VITAMINS
  3. POMALYST [Suspect]
     Active Substance: POMALIDOMIDE
     Indication: PLASMA CELL MYELOMA
     Dosage: 2 MG-4MG (ALTERNATE), 1 IN 1 D, PO
     Route: 048
     Dates: start: 20130722
  4. VITAMIN D3 (CALCIFEROL) [Concomitant]
  5. CALCIUM [Concomitant]
     Active Substance: CALCIUM
  6. MAG OXIDE [Concomitant]
  7. DEXAMETHASONE. [Concomitant]
     Active Substance: DEXAMETHASONE

REACTIONS (1)
  - Neutrophil count decreased [None]

NARRATIVE: CASE EVENT DATE: 20140519
